FAERS Safety Report 6521988-9 (Version None)
Quarter: 2009Q4

REPORT INFORMATION
  Report Type: 
  Country: None (occurrence: None)
  Receive Date: 20091230
  Receipt Date: 20091224
  Transmission Date: 20100525
  Serious: Yes (Hospitalization)
  Sender: FDA-Public Use
  Company Number: FR-TEVA-206867ISR

PATIENT
  Age: 82 Year
  Sex: Female

DRUGS (6)
  1. VINCRISTINE [Suspect]
     Indication: LYMPHOMA
     Route: 042
     Dates: start: 20090427, end: 20090629
  2. RITUXIMAB [Suspect]
     Indication: LYMPHOMA
     Route: 042
     Dates: start: 20090427, end: 20090629
  3. CYCLOPHOSPHAMIDE [Suspect]
     Indication: LYMPHOMA
     Route: 042
     Dates: start: 20090427, end: 20090629
  4. DOXORUBICIN HCL [Concomitant]
     Dates: start: 20090427, end: 20090518
  5. PREDNISOLONE [Concomitant]
     Dates: start: 20090427
  6. PEGFILGRASTIM [Concomitant]
     Dates: start: 20090629

REACTIONS (1)
  - AGRANULOCYTOSIS [None]
